FAERS Safety Report 23177328 (Version 2)
Quarter: 2023Q4

REPORT INFORMATION
  Report Type: Spontaneous
  Country: US (occurrence: US)
  Receive Date: 20231113
  Receipt Date: 20231122
  Transmission Date: 20240110
  Serious: No
  Sender: FDA-Public Use
  Company Number: US-BIOVITRUM-2023-US-017825

PATIENT
  Age: 18 Year
  Sex: Female

DRUGS (6)
  1. DOPTELET [Suspect]
     Active Substance: AVATROMBOPAG MALEATE
     Indication: Immune thrombocytopenia
     Dosage: 20MG EVERY OTHER DAY (4 DAYS OF THE WEEK)AND 40MG EVERY OTHER DAY (THEOTHER 3 DAYS OF THE WEEK)
     Route: 048
     Dates: start: 20231014
  2. DOPTELET [Suspect]
     Active Substance: AVATROMBOPAG MALEATE
     Dosage: TFSS-20MG
     Route: 048
     Dates: start: 202310
  3. DOPTELET [Suspect]
     Active Substance: AVATROMBOPAG MALEATE
     Dosage: MWF 40 MG
     Route: 048
     Dates: start: 202310
  4. BIRTH CONTROL PILLS (TRI-ESTARYLLA) [Concomitant]
     Indication: Product used for unknown indication
  5. WOMEN^S DAILY VITAMIN [Concomitant]
     Indication: Product used for unknown indication
  6. LEXAPRO [Concomitant]
     Active Substance: ESCITALOPRAM OXALATE
     Indication: Product used for unknown indication
     Dosage: STARTED 3 DAYS AGO

REACTIONS (7)
  - Menstruation delayed [Unknown]
  - Adverse drug reaction [Unknown]
  - Back pain [Not Recovered/Not Resolved]
  - Feeling abnormal [Unknown]
  - Pyrexia [Recovered/Resolved]
  - Crying [Unknown]
  - Renal disorder [Unknown]
